FAERS Safety Report 8470486-4 (Version None)
Quarter: 2012Q2

REPORT INFORMATION
  Report Type: 
  Country: None (occurrence: None)
  Receive Date: 20120627
  Receipt Date: 20110420
  Transmission Date: 20120825
  Serious: No
  Sender: FDA-Public Use
  Company Number: US-MYLANLABS-2011S1006511

PATIENT
  Age: 73 Year
  Sex: Male
  Weight: 90.72 kg

DRUGS (2)
  1. PERFOROMIST [Suspect]
     Indication: CHRONIC OBSTRUCTIVE PULMONARY DISEASE
     Route: 055
     Dates: start: 20110301, end: 20110301
  2. SULFASALAZINE [Concomitant]
     Indication: NAUSEA
     Dosage: FOR YEARS

REACTIONS (3)
  - FALL [None]
  - INSOMNIA [None]
  - DIZZINESS [None]
